FAERS Safety Report 18924943 (Version 8)
Quarter: 2024Q2

REPORT INFORMATION
  Report Type: Spontaneous
  Country: US (occurrence: US)
  Receive Date: 20210222
  Receipt Date: 20240628
  Transmission Date: 20240716
  Serious: Yes (Hospitalization, Other)
  Sender: FDA-Public Use
  Company Number: US-PFIZER INC-2021155110

PATIENT
  Age: 76 Year
  Sex: Female

DRUGS (2)
  1. XELJANZ [Suspect]
     Active Substance: TOFACITINIB CITRATE
     Indication: Rheumatoid arthritis
     Dosage: 5 MG, 2X/DAY (XELJANZ 5 MG PO BID)
     Route: 048
  2. XELJANZ [Suspect]
     Active Substance: TOFACITINIB CITRATE
     Dosage: 5 MG, 1X/DAY (XELJANZ 5 MG PO QD)
     Route: 048

REACTIONS (12)
  - Spinal fracture [Unknown]
  - Paralysis [Unknown]
  - Hip fracture [Unknown]
  - Cardiac failure congestive [Recovered/Resolved]
  - Post procedural complication [Unknown]
  - Illness [Unknown]
  - Off label use [Unknown]
  - Hypoacusis [Unknown]
  - Bedridden [Not Recovered/Not Resolved]
  - Arthritis [Unknown]
  - Feeling abnormal [Unknown]
  - Dysstasia [Not Recovered/Not Resolved]
